FAERS Safety Report 9737429 (Version 1)
Quarter: 2013Q4

REPORT INFORMATION
  Report Type: Spontaneous
  Country: DE (occurrence: DE)
  Receive Date: 20131206
  Receipt Date: 20131206
  Transmission Date: 20140711
  Serious: Yes (Hospitalization)
  Sender: FDA-Public Use
  Company Number: DE-ABBVIE-13P-062-1174793-00

PATIENT
  Age: 46 Year
  Sex: Female

DRUGS (3)
  1. HUMIRA [Suspect]
     Indication: RHEUMATOID ARTHRITIS
     Route: 058
     Dates: start: 20111031, end: 20130922
  2. HUMIRA [Suspect]
     Dates: start: 20131121
  3. ARCOXIA [Concomitant]
     Indication: RHEUMATOID ARTHRITIS

REACTIONS (2)
  - Uterine disorder [Recovering/Resolving]
  - Rheumatoid arthritis [Not Recovered/Not Resolved]
